FAERS Safety Report 12418473 (Version 1)
Quarter: 2016Q2

REPORT INFORMATION
  Report Type: Spontaneous
  Country: US (occurrence: US)
  Receive Date: 20160531
  Receipt Date: 20160531
  Transmission Date: 20160815
  Serious: No
  Sender: FDA-Public Use
  Company Number: US-TEVA-565322USA

PATIENT
  Age: 66 Year
  Sex: Female

DRUGS (1)
  1. HYDRALAZINE [Suspect]
     Active Substance: HYDRALAZINE HYDROCHLORIDE
     Route: 065
     Dates: start: 2008

REACTIONS (8)
  - Chest discomfort [Unknown]
  - Confusional state [Unknown]
  - Disorientation [Unknown]
  - Dizziness [Unknown]
  - Visual impairment [Unknown]
  - Vision blurred [Unknown]
  - Feeling hot [Unknown]
  - Fall [Unknown]

NARRATIVE: CASE EVENT DATE: 201412
